FAERS Safety Report 9121463 (Version 2)
Quarter: 2013Q1

REPORT INFORMATION
  Report Type: Other
  Country: BR (occurrence: BR)
  Receive Date: 20130104
  Receipt Date: 20130226
  Transmission Date: 20140127
  Serious: Yes (Other)
  Sender: FDA-Public Use
  Company Number: BR-CTI_01550_2012

PATIENT
  Age: 39 Year
  Sex: Female

DRUGS (5)
  1. FACTIVE [Suspect]
     Indication: SINUSITIS
     Route: 048
     Dates: start: 20121019, end: 20121023
  2. HIGROTON [Concomitant]
  3. PROPRANOLOL HYDROCHLORIDE [Concomitant]
     Dates: start: 2009
  4. PROLIVE [Concomitant]
     Dosage: DF
  5. CHLORTHALIDONE [Concomitant]

REACTIONS (11)
  - Erythema [Recovered/Resolved]
  - Pruritus [Recovered/Resolved]
  - Tremor [Recovering/Resolving]
  - Hypokalaemia [Unknown]
  - Diarrhoea [Recovering/Resolving]
  - Hypersensitivity [Recovered/Resolved]
  - Blood pressure increased [Recovered/Resolved]
  - Dry mouth [Recovered/Resolved]
  - Headache [Recovered/Resolved]
  - Colitis [Recovered/Resolved]
  - Generalised erythema [None]
